FAERS Safety Report 12686740 (Version 1)
Quarter: 2016Q3

REPORT INFORMATION
  Report Type: Spontaneous
  Country: US (occurrence: US)
  Receive Date: 20160825
  Receipt Date: 20160825
  Transmission Date: 20161109
  Serious: No
  Sender: FDA-Public Use
  Company Number: US-NOVOPROD-466813

PATIENT
  Age: 76 Year
  Sex: Female

DRUGS (1)
  1. VICTOZA [Suspect]
     Active Substance: LIRAGLUTIDE
     Indication: PRODUCT USED FOR UNKNOWN INDICATION
     Dosage: UNK
     Route: 058

REACTIONS (7)
  - Eye swelling [Unknown]
  - Dehydration [Unknown]
  - Headache [Unknown]
  - Ocular hyperaemia [Unknown]
  - Vomiting [Unknown]
  - Nausea [Unknown]
  - Change of bowel habit [Unknown]
